FAERS Safety Report 9871311 (Version 4)
Quarter: 2014Q2

REPORT INFORMATION
  Report Type: Spontaneous
  Country: US (occurrence: US)
  Receive Date: 20140205
  Receipt Date: 20140527
  Transmission Date: 20141212
  Serious: Yes (Other)
  Sender: FDA-Public Use
  Company Number: US-BAYER-2014-017767

PATIENT
  Age: 28 Year
  Sex: Female
  Weight: 95.24 kg

DRUGS (4)
  1. MIRENA [Suspect]
     Indication: CONTRACEPTION
     Dosage: 20 MCG/24HR, CONT
     Route: 015
     Dates: start: 20090609, end: 20091020
  2. LEVOTHYROXINE [Concomitant]
     Indication: HYPOTHYROIDISM
     Dosage: UNK
     Dates: start: 1993
  3. EFFEXOR [Concomitant]
     Route: 048
  4. ALBUTEROL [Concomitant]

REACTIONS (10)
  - Uterine perforation [None]
  - Genital haemorrhage [None]
  - Injury [None]
  - Pain [None]
  - Emotional distress [None]
  - Device breakage [None]
  - Depression [None]
  - Anxiety [None]
  - Fear [None]
  - Device issue [None]
